FAERS Safety Report 10908803 (Version 1)
Quarter: 2015Q1

REPORT INFORMATION
  Report Type: Spontaneous
  Country: US (occurrence: None)
  Receive Date: 20150310
  Receipt Date: 20150310
  Transmission Date: 20150721
  Serious: Yes (Other)
  Sender: FDA-Public Use
  Company Number: None

PATIENT
  Age: 35 Year
  Sex: Female
  Weight: 140 kg

DRUGS (3)
  1. PCN SULFA [Concomitant]
  2. BACLOFEN. [Suspect]
     Active Substance: BACLOFEN
     Indication: MUSCLE SPASMS
     Dosage: SOME DAY
     Route: 048
     Dates: start: 201502
  3. COMPAZINE [Concomitant]
     Active Substance: PROCHLORPERAZINE MALEATE

REACTIONS (4)
  - Chills [None]
  - Pyrexia [None]
  - Malaise [None]
  - Nausea [None]

NARRATIVE: CASE EVENT DATE: 201502
